FAERS Safety Report 19523819 (Version 1)
Quarter: 2021Q3

REPORT INFORMATION
  Report Type: Spontaneous
  Country: DE (occurrence: DE)
  Receive Date: 20210712
  Receipt Date: 20210712
  Transmission Date: 20211014
  Serious: Yes (Other)
  Sender: FDA-Public Use
  Company Number: NVSC2021DE150032

PATIENT
  Sex: Female

DRUGS (7)
  1. TAFINLAR [Suspect]
     Active Substance: DABRAFENIB MESYLATE
     Indication: NON-SMALL CELL LUNG CANCER
     Dosage: 50 MG, QD (1?0?1?0) (TABLET)
     Route: 048
     Dates: start: 20191118, end: 20191124
  2. TAFINLAR [Suspect]
     Active Substance: DABRAFENIB MESYLATE
     Dosage: 75 MG, QD (1?0?1?0)
     Route: 048
     Dates: start: 20191125, end: 20191201
  3. TAFINLAR [Suspect]
     Active Substance: DABRAFENIB MESYLATE
     Dosage: 75 MG, QD (2?0?1?0)
     Route: 048
     Dates: start: 20191202, end: 20191208
  4. MEKINIST [Suspect]
     Active Substance: TRAMETINIB DIMETHYL SULFOXIDE
     Indication: NON-SMALL CELL LUNG CANCER
     Dosage: 2 MG, QD (1?0?0?0)
     Route: 048
     Dates: start: 20191118
  5. PHENPROCOUMON [Concomitant]
     Active Substance: PHENPROCOUMON
     Indication: POSTIMPLANTATION SYNDROME
     Dosage: UNK
     Route: 065
  6. TAFINLAR [Suspect]
     Active Substance: DABRAFENIB MESYLATE
     Dosage: 75 MG, QD (2?0?2?0)
     Route: 048
     Dates: start: 20191209, end: 20200623
  7. TAFINLAR [Suspect]
     Active Substance: DABRAFENIB MESYLATE
     Dosage: 50 MG, QD (2?0?2?0)
     Route: 048
     Dates: start: 20200624

REACTIONS (9)
  - Lymphadenopathy [Unknown]
  - Lung opacity [Unknown]
  - Xerosis [Recovering/Resolving]
  - Rash [Recovering/Resolving]
  - Pruritus [Recovering/Resolving]
  - Thoracic vertebral fracture [Not Recovered/Not Resolved]
  - Gastrointestinal wall thickening [Unknown]
  - Fatigue [Recovering/Resolving]
  - Metastases to peritoneum [Unknown]

NARRATIVE: CASE EVENT DATE: 20200206
